FAERS Safety Report 13505007 (Version 1)
Quarter: 2017Q2

REPORT INFORMATION
  Report Type: Spontaneous
  Country: US (occurrence: US)
  Receive Date: 20170502
  Receipt Date: 20170502
  Transmission Date: 20170830
  Serious: Yes (Death, Hospitalization)
  Sender: FDA-Public Use
  Company Number: US-B.I. PHARMACEUTICALS,INC./RIDGEFIELD-2017-BI-024655

PATIENT
  Sex: Female
  Weight: 72.7 kg

DRUGS (1)
  1. PRADAXA [Suspect]
     Active Substance: DABIGATRAN ETEXILATE MESYLATE
     Indication: ATRIAL FIBRILLATION
     Route: 048

REACTIONS (6)
  - Upper gastrointestinal haemorrhage [Fatal]
  - Acute kidney injury [Fatal]
  - Metabolic acidosis [Unknown]
  - Sepsis [Fatal]
  - Urinary tract infection [Unknown]
  - Small intestinal obstruction [Unknown]
